FAERS Safety Report 6795964-5 (Version None)
Quarter: 2010Q2

REPORT INFORMATION
  Report Type: 
  Country: None (occurrence: None)
  Receive Date: 20100625
  Receipt Date: 20100618
  Transmission Date: 20101027
  Serious: Yes (Hospitalization)
  Sender: FDA-Public Use
  Company Number: B0662419A

PATIENT
  Sex: Female

DRUGS (1)
  1. AUGMENTIN '125' [Suspect]
     Dosage: 1TAB PER DAY
     Route: 048
     Dates: start: 20100303, end: 20100303

REACTIONS (2)
  - ABDOMINAL PAIN UPPER [None]
  - RASH [None]
